FAERS Safety Report 15366294 (Version 3)
Quarter: 2018Q4

REPORT INFORMATION
  Report Type: Spontaneous
  Country: US (occurrence: US)
  Receive Date: 20180910
  Receipt Date: 20181022
  Transmission Date: 20190204
  Serious: No
  Sender: FDA-Public Use
  Company Number: US-SA-2018SA251030

PATIENT
  Age: 47 Year
  Sex: Male
  Weight: 128.1 kg

DRUGS (14)
  1. XELJANZ XR [Concomitant]
     Active Substance: TOFACITINIB CITRATE
     Dosage: 1 DF, QD
     Route: 048
     Dates: start: 20180613
  2. HYDROCHLOROTHIAZIDE. [Concomitant]
     Active Substance: HYDROCHLOROTHIAZIDE
     Dosage: 1 DF, QD
     Route: 048
     Dates: start: 20180320
  3. DEXMETHYLPHENIDATE [Concomitant]
     Active Substance: DEXMETHYLPHENIDATE HYDROCHLORIDE
     Dosage: 1 DF, BID
     Route: 048
     Dates: start: 20180408
  4. PREDNISONE. [Concomitant]
     Active Substance: PREDNISONE
     Dosage: 2 UNK
     Dates: start: 20180613
  5. METHOTREXATE SODIUM. [Concomitant]
     Active Substance: METHOTREXATE SODIUM
     Dosage: 4 DF, QW
     Route: 048
     Dates: start: 20180613
  6. OSELTAMIVIR [Concomitant]
     Active Substance: OSELTAMIVIR
     Dosage: UNK
     Dates: start: 20180129, end: 20180613
  7. KEVZARA [Suspect]
     Active Substance: SARILUMAB
  8. ALLOPURINOL. [Concomitant]
     Active Substance: ALLOPURINOL
     Dosage: 1 DF, QD
     Route: 048
  9. AMLODIPINE [Concomitant]
     Active Substance: AMLODIPINE BESYLATE
     Dosage: 1 DF, BID
     Route: 048
     Dates: start: 20170611
  10. MOBIC [Concomitant]
     Active Substance: MELOXICAM
     Dosage: 1 DF, PRN
     Route: 048
  11. QSYMIA [Concomitant]
     Active Substance: PHENTERMINE HYDROCHLORIDE\TOPIRAMATE
     Dosage: UNK
     Dates: start: 20180319, end: 20180613
  12. METHYLPREDNISOLONE. [Concomitant]
     Active Substance: METHYLPREDNISOLONE
     Dosage: UNK UNK, QD
     Route: 048
     Dates: start: 20180517
  13. PREDNISONE. [Concomitant]
     Active Substance: PREDNISONE
     Dosage: 4 DF, QD
     Route: 048
     Dates: start: 20180613
  14. LOSARTAN. [Concomitant]
     Active Substance: LOSARTAN
     Dosage: 1 DF, QD
     Route: 048
     Dates: start: 20180527

REACTIONS (1)
  - Therapeutic response decreased [Unknown]
